FAERS Safety Report 6068723-9 (Version None)
Quarter: 2009Q1

REPORT INFORMATION
  Report Type: 
  Country: None (occurrence: None)
  Receive Date: 20090206
  Receipt Date: 20090203
  Transmission Date: 20090719
  Serious: Yes (Life-Threatening)
  Sender: FDA-Public Use
  Company Number: B0557713A

PATIENT
  Age: 42 Year
  Sex: Female

DRUGS (2)
  1. AVANDIA [Suspect]
     Indication: DIABETES MELLITUS
     Dosage: 4MG PER DAY
     Route: 048
     Dates: start: 20090119, end: 20090119
  2. JANUVIA [Concomitant]
     Indication: DIABETES MELLITUS
     Dosage: 100MG PER DAY
     Route: 048
     Dates: start: 20090112, end: 20090119

REACTIONS (2)
  - DYSPNOEA [None]
  - OEDEMA [None]
